FAERS Safety Report 17468084 (Version 1)
Quarter: 2020Q1

REPORT INFORMATION
  Report Type: Spontaneous
  Country: US (occurrence: US)
  Receive Date: 20200224
  Receipt Date: 20200224
  Transmission Date: 20200409
  Serious: Yes (Hospitalization)
  Sender: FDA-Public Use
  Company Number: None

PATIENT
  Age: 26 Year
  Weight: 68.04 kg

DRUGS (3)
  1. STRAINLY INTERNET SIGHT THC PLANTS (HEMP) [Suspect]
     Active Substance: HEMP
  2. WWW.STRAINLY.IO [Concomitant]
     Dates: start: 20200224, end: 20200224
  3. STRAINLY INTERNET SIGHT THC POLLEN (CBD, THC) [Suspect]
     Active Substance: CANNABIDIOL\.DELTA.8-TETRAHYDROCANNABINOL

REACTIONS (2)
  - Gastroenteritis viral [None]
  - Poor quality product administered [None]

NARRATIVE: CASE EVENT DATE: 20200224
